FAERS Safety Report 7177178-2 (Version None)
Quarter: 2010Q4

REPORT INFORMATION
  Report Type: 
  Country: None (occurrence: None)
  Receive Date: 20101220
  Receipt Date: 20101208
  Transmission Date: 20110411
  Serious: Yes (Hospitalization, Other)
  Sender: FDA-Public Use
  Company Number: DE-ROCHE-660874

PATIENT
  Sex: Male
  Weight: 90 kg

DRUGS (54)
  1. MYCOPHENOLATE MOFETIL [Suspect]
     Indication: RENAL TRANSPLANT
     Route: 048
     Dates: start: 20090420, end: 20090727
  2. MYCOPHENOLATE MOFETIL [Suspect]
     Route: 048
     Dates: start: 20090728, end: 20090806
  3. MYCOPHENOLATE MOFETIL [Suspect]
     Route: 048
     Dates: start: 20090807, end: 20090914
  4. ADVAGRAF [Suspect]
     Indication: RENAL TRANSPLANT
     Dosage: LAST DOSE PRIOR TO SAE: 28 SEP 2009, FREQUENCY: ONCE
     Route: 048
     Dates: start: 20090421
  5. ADVAGRAF [Suspect]
     Dosage: DOSING AMOUNT: 16
     Route: 048
     Dates: start: 20090423, end: 20090423
  6. ADVAGRAF [Suspect]
     Dosage: DOSING AMOUNT : 5
     Route: 048
     Dates: start: 20090425, end: 20090426
  7. ADVAGRAF [Suspect]
     Dosage: DOSING AMOUNT : 8
     Route: 048
     Dates: start: 20090427, end: 20090427
  8. ADVAGRAF [Suspect]
     Dosage: DOSING AMOUNT : 12
     Route: 048
     Dates: start: 20090428, end: 20090428
  9. ADVAGRAF [Suspect]
     Dosage: DOSING AMOUNT : 15
     Route: 048
     Dates: start: 20090429, end: 20090429
  10. ADVAGRAF [Suspect]
     Dosage: DOSING AMOUNT : 14
     Route: 048
     Dates: start: 20090430, end: 20090511
  11. ADVAGRAF [Suspect]
     Dosage: DOSING AMOUNT : 11
     Route: 048
     Dates: start: 20090512, end: 20090519
  12. ADVAGRAF [Suspect]
     Dosage: DOSING AMOUNT : 10
     Route: 048
     Dates: start: 20090520, end: 20090528
  13. ADVAGRAF [Suspect]
     Dosage: DOSING AMOUNT : 9
     Route: 048
     Dates: start: 20090529, end: 20090615
  14. ADVAGRAF [Suspect]
     Dosage: DOSING AMOUNT : 8
     Route: 048
     Dates: start: 20090616, end: 20090622
  15. ADVAGRAF [Suspect]
     Dosage: DOSING AMOUNT : 7
     Route: 048
     Dates: start: 20090623, end: 20090715
  16. ADVAGRAF [Suspect]
     Dosage: DOSING AMOUNT : 6
     Route: 048
     Dates: start: 20090716, end: 20090722
  17. ADVAGRAF [Suspect]
     Dosage: DOSING AMOUNT : 5
     Route: 048
     Dates: start: 20090723, end: 20090916
  18. ADVAGRAF [Suspect]
     Dosage: DOSING AMOUNT : 6
     Route: 048
     Dates: start: 20090917, end: 20090930
  19. BASILIXIMAB [Suspect]
     Indication: RENAL TRANSPLANT
     Dosage: LAST DOSE PRIOR TO SAE: 25 APRIL 2009, FREQUENCY: 2
     Route: 042
     Dates: start: 20090420, end: 20090420
  20. BASILIXIMAB [Suspect]
     Route: 042
     Dates: start: 20090425, end: 20090425
  21. DECORTIN H [Suspect]
     Indication: RENAL TRANSPLANT
     Dosage: DOSING AMOUNT: 250
     Route: 048
     Dates: start: 20090420, end: 20090420
  22. DECORTIN H [Suspect]
     Dosage: DOSING AMOUNT: 100
     Route: 048
     Dates: start: 20090422, end: 20090423
  23. DECORTIN H [Suspect]
     Dosage: DOSING AMOUNT: 50
     Route: 048
     Dates: start: 20090424, end: 20090428
  24. DECORTIN H [Suspect]
     Dosage: DOSING AMOUNT: 10
     Route: 048
     Dates: start: 20091010, end: 20091016
  25. DECORTIN H [Suspect]
     Dosage: DOSING AMOUNT: 50
     Route: 048
     Dates: start: 20090919, end: 20090925
  26. DECORTIN H [Suspect]
     Dosage: DOSING AMOUNT: 20
     Route: 048
     Dates: start: 20091003, end: 20091009
  27. DECORTIN H [Suspect]
     Dosage: DOSING AMOUNT: 2
     Route: 048
     Dates: start: 20090926, end: 20091002
  28. DECORTIN H [Suspect]
     Dosage: DOSING AMOUNT: 80
     Route: 048
     Dates: start: 20090828, end: 20090901
  29. DECORTIN H [Suspect]
     Dosage: DOSING AMOUNT: 70
     Route: 048
     Dates: start: 20090902, end: 20090918
  30. DECORTIN H [Suspect]
     Dosage: DOSING AMOUNT: 5
     Route: 048
     Dates: start: 20091017
  31. DORMICUM [Concomitant]
     Dates: start: 20090420, end: 20090420
  32. DIPIDOLOR [Concomitant]
     Indication: PAIN PROPHYLAXIS
     Dates: start: 20090420, end: 20090424
  33. SODIUM CHLORIDE [Concomitant]
     Dosage: DRUG REPORTED AS NACL 0.9%
     Dates: start: 20090420, end: 20090425
  34. POTASSIUM CHLORIDE [Concomitant]
     Indication: PROPHYLAXIS
     Dosage: DOSE: 40 UNITS
     Dates: start: 20090420, end: 20090421
  35. PANTOZOL [Concomitant]
     Indication: PROPHYLAXIS
     Dates: start: 20090421, end: 20090519
  36. PERFALGAN [Concomitant]
     Indication: PAIN PROPHYLAXIS
     Dates: start: 20090421, end: 20090426
  37. PASPERTIN [Concomitant]
     Dates: start: 20090421, end: 20090421
  38. CPS PULVER [Concomitant]
     Indication: PROPHYLAXIS
     Dosage: DOSE FORM: 1
     Dates: start: 20090421, end: 20090421
  39. INSUMAN RAPID [Concomitant]
     Indication: PROPHYLAXIS
     Dates: start: 20090421, end: 20090421
  40. LASIX [Concomitant]
     Indication: PROPHYLAXIS
     Dates: start: 20090421, end: 20090422
  41. LASIX [Concomitant]
     Dates: start: 20090425, end: 20090429
  42. LASIX [Concomitant]
     Dates: start: 20090430, end: 20090430
  43. HEPARIN [Concomitant]
     Indication: THROMBOSIS PROPHYLAXIS
     Dates: start: 20090421, end: 20090425
  44. NOCTAMID [Concomitant]
     Indication: PROPHYLAXIS
     Dates: start: 20090422, end: 20090505
  45. LAXOBERAL [Concomitant]
     Indication: CONSTIPATION PROPHYLAXIS
     Dosage: DOSE :20
     Dates: start: 20090422, end: 20090428
  46. SAB SIMPLEX [Concomitant]
     Indication: CONSTIPATION PROPHYLAXIS
     Dates: start: 20090422, end: 20090428
  47. SPASMO URGENIN [Concomitant]
     Indication: PAIN PROPHYLAXIS
     Dosage: DOSE: 2
     Dates: start: 20090422, end: 20090501
  48. COLECALCIFEROL [Concomitant]
     Dosage: DOSE: 1000
     Dates: start: 20090319, end: 20091022
  49. VALCYTE [Concomitant]
     Dates: start: 20090423, end: 20090722
  50. COTRIM [Concomitant]
     Dates: start: 20090506, end: 20090728
  51. TRAMAL [Concomitant]
     Indication: PAIN PROPHYLAXIS
     Dates: start: 20090520, end: 20090531
  52. TRAMAL [Concomitant]
     Dates: start: 20090427, end: 20090427
  53. SEVREDOL [Concomitant]
     Dates: start: 20090428, end: 20090429
  54. TARGIN [Concomitant]
     Indication: PAIN PROPHYLAXIS
     Dates: start: 20090428, end: 20090501

REACTIONS (8)
  - BLOOD CREATININE INCREASED [None]
  - ILL-DEFINED DISORDER [None]
  - LEUKOPENIA [None]
  - NEPHROPATHY [None]
  - NEPHROSCLEROSIS [None]
  - RENAL TUBULAR DISORDER [None]
  - TRANSPLANT REJECTION [None]
  - VIRAL INFECTION [None]
